FAERS Safety Report 9455421 (Version 2)
Quarter: 2013Q3

REPORT INFORMATION
  Report Type: Spontaneous
  Country: PH (occurrence: PH)
  Receive Date: 20130813
  Receipt Date: 20130816
  Transmission Date: 20140515
  Serious: Yes (Death, Hospitalization)
  Sender: FDA-Public Use
  Company Number: PHHY2013PH084013

PATIENT
  Sex: Male
  Weight: 64 kg

DRUGS (1)
  1. TASIGNA [Suspect]
     Indication: CHRONIC MYELOID LEUKAEMIA
     Route: 048

REACTIONS (5)
  - Acute myocardial infarction [Fatal]
  - Dyspnoea [Fatal]
  - Pneumonia [Not Recovered/Not Resolved]
  - Cough [Not Recovered/Not Resolved]
  - Pyrexia [Not Recovered/Not Resolved]
